FAERS Safety Report 21727368 (Version 5)
Quarter: 2023Q1

REPORT INFORMATION
  Report Type: Spontaneous
  Country: US (occurrence: US)
  Receive Date: 20221214
  Receipt Date: 20230125
  Transmission Date: 20230418
  Serious: No
  Sender: FDA-Public Use
  Company Number: US-PFIZER INC-202201362853

PATIENT
  Age: 16 Year
  Sex: Male
  Weight: 63.5 kg

DRUGS (2)
  1. GENOTROPIN [Suspect]
     Active Substance: SOMATROPIN
     Indication: Blood growth hormone abnormal
     Dosage: 2.4 MG, 1X/DAY (ONCE A DAY EVERY NIGHT INJECTION)
  2. DEXAMETHASONE\OFLOXACIN [Concomitant]
     Active Substance: DEXAMETHASONE\OFLOXACIN
     Indication: Attention deficit hyperactivity disorder
     Dosage: UNK

REACTIONS (5)
  - Drug dose omission by device [Unknown]
  - Device use issue [Unknown]
  - Device failure [Unknown]
  - Needle issue [Unknown]
  - Device information output issue [Unknown]

NARRATIVE: CASE EVENT DATE: 20221206
